FAERS Safety Report 12282441 (Version 1)
Quarter: 2016Q2

REPORT INFORMATION
  Report Type: Spontaneous
  Country: KR (occurrence: KR)
  Receive Date: 20160419
  Receipt Date: 20160419
  Transmission Date: 20160815
  Serious: Yes (Death)
  Sender: FDA-Public Use
  Company Number: KR-BAYER-2016-074006

PATIENT

DRUGS (1)
  1. ULTRAGRAF 300 [Suspect]
     Active Substance: IOPROMIDE

REACTIONS (1)
  - Death [Fatal]
